FAERS Safety Report 5355794-8 (Version None)
Quarter: 2007Q2

REPORT INFORMATION
  Report Type: 
  Country: None (occurrence: None)
  Receive Date: 20070530
  Receipt Date: 20061009
  Transmission Date: 20071010
  Serious: Yes (Other)
  Sender: FDA-Public Use
  Company Number: US200610001640

PATIENT
  Sex: Female
  Weight: 56.2 kg

DRUGS (1)
  1. ZYPREXA [Suspect]
     Dosage: 15 MEQ
     Dates: start: 19990101, end: 20010101

REACTIONS (3)
  - CONVULSION [None]
  - DIABETES MELLITUS [None]
  - WEIGHT DECREASED [None]
